FAERS Safety Report 5297664-X (Version None)
Quarter: 2007Q2

REPORT INFORMATION
  Report Type: 
  Country: None (occurrence: None)
  Receive Date: 20070409
  Receipt Date: 20070404
  Transmission Date: 20071010
  Serious: Yes (Other)
  Sender: FDA-Public Use
  Company Number: A0645999A

PATIENT
  Age: 68 Year
  Sex: Female

DRUGS (2)
  1. NICORETTE [Suspect]
     Indication: SMOKING CESSATION THERAPY
     Dosage: 192 GUM / WEEKLY / TRANSBUCCAL
     Dates: start: 20010101
  2. LEVOTHYROXINE SODIUM [Concomitant]

REACTIONS (3)
  - DEPENDENCE [None]
  - DEPRESSION [None]
  - OVERDOSE [None]
